FAERS Safety Report 6602747-5 (Version None)
Quarter: 2010Q1

REPORT INFORMATION
  Report Type: 
  Country: None (occurrence: None)
  Receive Date: 20100225
  Receipt Date: 20090506
  Transmission Date: 20100710
  Serious: No
  Sender: FDA-Public Use
  Company Number: US-BAUSCH-2009BL002256

PATIENT
  Age: 65 Year
  Sex: Female

DRUGS (1)
  1. CROMOLYN SODIUM [Suspect]
     Indication: EYE ALLERGY
     Route: 047
     Dates: start: 20090505, end: 20090505

REACTIONS (4)
  - EYE IRRITATION [None]
  - EYE PAIN [None]
  - HYPERSENSITIVITY [None]
  - VISUAL IMPAIRMENT [None]
